FAERS Safety Report 7015232-6 (Version None)
Quarter: 2010Q3

REPORT INFORMATION
  Report Type: 
  Country: None (occurrence: None)
  Receive Date: 20100927
  Receipt Date: 20100915
  Transmission Date: 20110219
  Serious: Yes (Other)
  Sender: FDA-Public Use
  Company Number: US-SANOFI-AVENTIS-2010SA052235

PATIENT
  Age: 67 Year
  Sex: Female
  Weight: 84 kg

DRUGS (2)
  1. MULTAQ [Suspect]
     Route: 048
     Dates: start: 20100714, end: 20100812
  2. SECTRAL [Concomitant]
     Route: 048
     Dates: start: 20100714, end: 20100730

REACTIONS (2)
  - ATRIAL FIBRILLATION [None]
  - CONDITION AGGRAVATED [None]
